FAERS Safety Report 19499373 (Version 2)
Quarter: 2021Q3

REPORT INFORMATION
  Report Type: Spontaneous
  Country: MY (occurrence: MY)
  Receive Date: 20210707
  Receipt Date: 20210713
  Transmission Date: 20211014
  Serious: Yes (Other)
  Sender: FDA-Public Use
  Company Number: MY-AUROBINDO-AUR-APL-2021-028219

PATIENT
  Age: 46 Year
  Sex: Female

DRUGS (1)
  1. AUROTAZ?P POWDER FOR INJECTION 4.5G [Suspect]
     Active Substance: PIPERACILLIN SODIUM\TAZOBACTAM SODIUM
     Indication: NECROTISING FASCIITIS
     Dosage: 2.25 GRAM, FOUR TIMES/DAY
     Route: 042

REACTIONS (2)
  - Rash maculo-papular [Recovered/Resolved]
  - Skin lesion [Recovered/Resolved]
